FAERS Safety Report 8088547-0 (Version None)
Quarter: 2012Q1

REPORT INFORMATION
  Report Type: 
  Country: None (occurrence: None)
  Receive Date: 20120128
  Receipt Date: 20110408
  Transmission Date: 20120608
  Serious: No
  Sender: FDA-Public Use
  Company Number: US-ABBOTT-11P-163-0717514-00

PATIENT
  Age: 70 Year
  Sex: Male

DRUGS (8)
  1. OMEGA 6 [Concomitant]
     Indication: PRODUCT USED FOR UNKNOWN INDICATION
  2. DONEPEZIL HCL [Concomitant]
     Indication: MEMORY IMPAIRMENT
  3. MULTIVITAMIN CENTRUL SILVER [Concomitant]
     Indication: PRODUCT USED FOR UNKNOWN INDICATION
  4. ATENOLOL [Concomitant]
     Indication: BLOOD PRESSURE
  5. ACTOS [Concomitant]
     Indication: BLOOD GLUCOSE ABNORMAL
  6. HUMIRA [Suspect]
     Indication: PSORIASIS
     Dates: start: 20110301
  7. HYDROCHLOROTHIAZIDE [Concomitant]
     Indication: FLUID RETENTION
  8. LOVAZA [Concomitant]
     Indication: PRODUCT USED FOR UNKNOWN INDICATION

REACTIONS (3)
  - PRURITUS [None]
  - NIGHT SWEATS [None]
  - INJECTION SITE PAIN [None]
